FAERS Safety Report 7648392-4 (Version None)
Quarter: 2011Q3

REPORT INFORMATION
  Report Type: 
  Country: None (occurrence: None)
  Receive Date: 20110801
  Receipt Date: 20110721
  Transmission Date: 20111222
  Serious: Yes (Hospitalization, Other)
  Sender: FDA-Public Use
  Company Number: BR-ASTRAZENECA-2011SE44382

PATIENT
  Age: 70 Year
  Sex: Male
  Weight: 75 kg

DRUGS (5)
  1. ATACAND [Suspect]
     Indication: HYPERTENSION
     Route: 048
     Dates: start: 20010101, end: 20110720
  2. ASPIRIN PREVENT [Concomitant]
     Route: 048
     Dates: start: 19950101
  3. ATENOLOL [Suspect]
     Indication: HYPERTENSION
     Route: 048
     Dates: start: 20010101
  4. PLAVIX [Concomitant]
     Route: 048
     Dates: start: 19950101
  5. SIMVASTATIN [Concomitant]
     Route: 048
     Dates: start: 19950101

REACTIONS (5)
  - BLOOD PRESSURE INADEQUATELY CONTROLLED [None]
  - ARTERIOSCLEROSIS CORONARY ARTERY [None]
  - CORONARY ARTERY OCCLUSION [None]
  - ARTERIAL OCCLUSIVE DISEASE [None]
  - AORTIC ANEURYSM [None]
